FAERS Safety Report 25799602 (Version 1)
Quarter: 2025Q3

REPORT INFORMATION
  Report Type: Report from Study
  Country: US (occurrence: US)
  Receive Date: 20250914
  Receipt Date: 20250914
  Transmission Date: 20251021
  Serious: Yes (Hospitalization)
  Sender: AUROBINDO
  Company Number: US-AUROBINDO-AUR-APL-2025-046165

PATIENT
  Age: 18 Year
  Sex: Female

DRUGS (4)
  1. PREDNISONE [Suspect]
     Active Substance: PREDNISONE
     Indication: Product used for unknown indication
     Route: 065
  2. ALPRAZOLAM [Suspect]
     Active Substance: ALPRAZOLAM
     Indication: Product used for unknown indication
     Route: 065
  3. LITHIUM [Suspect]
     Active Substance: LITHIUM
     Indication: Product used for unknown indication
     Route: 065
  4. BENZONATATE [Suspect]
     Active Substance: BENZONATATE
     Indication: Product used for unknown indication
     Route: 065

REACTIONS (3)
  - Bundle branch block [Unknown]
  - Sinus tachycardia [Unknown]
  - Intentional product misuse [Unknown]
